FAERS Safety Report 13905559 (Version 2)
Quarter: 2017Q4

REPORT INFORMATION
  Report Type: Other
  Country: HR (occurrence: HR)
  Receive Date: 20170825
  Receipt Date: 20171103
  Transmission Date: 20180320
  Serious: Yes (Other)
  Sender: FDA-Public Use
  Company Number: HR-DEPOMED, INC.-HR-2017DEP001726

PATIENT
  Age: 40 Year
  Sex: Female

DRUGS (2)
  1. TAPENTADOL HYDROCHLORIDE [Suspect]
     Active Substance: TAPENTADOL HYDROCHLORIDE
     Indication: PRODUCT USED FOR UNKNOWN INDICATION
     Dosage: 100 MG, UNK
     Route: 048
     Dates: start: 20170321, end: 20170413
  2. AMYZOL                             /00002201/ [Concomitant]
     Indication: PRODUCT USED FOR UNKNOWN INDICATION
     Dosage: UNK
     Dates: start: 20161105

REACTIONS (8)
  - Decreased appetite [Recovered/Resolved]
  - Angina pectoris [Recovered/Resolved]
  - Dyspnoea [Recovered/Resolved]
  - Tachycardia [Recovered/Resolved]
  - Disturbance in attention [Recovered/Resolved]
  - Hyperhidrosis [Recovered/Resolved]
  - Hypopnoea [Recovered/Resolved]
  - Poor quality sleep [Recovered/Resolved]

NARRATIVE: CASE EVENT DATE: 20170323
